FAERS Safety Report 20183136 (Version 1)
Quarter: 2021Q4

REPORT INFORMATION
  Report Type: Spontaneous
  Country: US (occurrence: US)
  Receive Date: 20211214
  Receipt Date: 20211214
  Transmission Date: 20220303
  Serious: Yes (Life-Threatening, Hospitalization, Other)
  Sender: FDA-Public Use
  Company Number: US-MLMSERVICE-20211126-3241507-1

PATIENT
  Age: 36 Year
  Sex: Female

DRUGS (1)
  1. IBUPROFEN [Suspect]
     Active Substance: IBUPROFEN
     Indication: Product used for unknown indication
     Dosage: UNK, UNK
     Route: 048

REACTIONS (8)
  - Abdominal abscess [Unknown]
  - Intestinal ischaemia [Recovering/Resolving]
  - Stevens-Johnson syndrome [Recovering/Resolving]
  - Pneumonia [Recovering/Resolving]
  - Enteritis [Recovering/Resolving]
  - Respiratory failure [Recovering/Resolving]
  - Pneumatosis [Recovering/Resolving]
  - Pelvic abscess [Unknown]
